FAERS Safety Report 8549488 (Version 3)
Quarter: 2013Q1

REPORT INFORMATION
  Report Type: Spontaneous
  Country: GB (occurrence: GB)
  Receive Date: 20120507
  Receipt Date: 20130322
  Transmission Date: 20140127
  Serious: Yes (Life-Threatening, Hospitalization, Disabling, Other)
  Sender: FDA-Public Use
  Company Number: PHFR2012GB001731

PATIENT
  Age: 60 Year
  Sex: Male

DRUGS (10)
  1. CLOZARIL [Suspect]
     Indication: SCHIZOPHRENIA, PARANOID TYPE
     Dosage: UNK
     Dates: start: 20010701
  2. CLOZARIL [Suspect]
     Dosage: 1 DF, OF 200 MG
     Route: 048
     Dates: start: 20120312
  3. CLOZARIL [Suspect]
     Dosage: 500 MG, DAILY
     Route: 048
  4. AMISULPRIDE [Concomitant]
     Dosage: 100 UKN, BID
     Route: 048
  5. CLOPIDOGREL [Concomitant]
     Dosage: 75 MG, ONCE IN MORNING
     Route: 048
  6. SALBUTAMOL [Concomitant]
     Indication: CHRONIC OBSTRUCTIVE PULMONARY DISEASE
     Dosage: 100 UG, PRN
  7. DICLOFENAC [Concomitant]
     Dosage: 50 MG, TID
     Route: 048
  8. TRAMADOL [Concomitant]
     Dosage: 1 DF, PRN
     Route: 048
  9. CO-CODAMOL [Concomitant]
     Dosage: 1 DF, QD
     Route: 048
  10. FLIXONASE [Concomitant]
     Dosage: 2 PUFFS

REACTIONS (15)
  - Ischaemic nephropathy [Recovered/Resolved]
  - Vascular occlusion [Not Recovered/Not Resolved]
  - Coma scale abnormal [Recovered/Resolved]
  - Respiratory failure [Recovered/Resolved]
  - Renal failure acute [Recovered/Resolved]
  - Sepsis [Recovered/Resolved]
  - Rhabdomyolysis [Recovered/Resolved]
  - Hypotension [Recovered/Resolved]
  - Atrial fibrillation [Recovering/Resolving]
  - Circulatory collapse [Recovered/Resolved]
  - Cardiac arrest [Recovered/Resolved]
  - Platelet count decreased [Recovered/Resolved]
  - Hypothermia [Recovered/Resolved]
  - Tachycardia [Recovered/Resolved]
  - Arrhythmia [Unknown]
